FAERS Safety Report 8949096 (Version 2)
Quarter: 2012Q4

REPORT INFORMATION
  Report Type: 
  Country: US (occurrence: US)
  Receive Date: 20121206
  Receipt Date: 20121212
  Transmission Date: 20130627
  Serious: No
  Sender: FDA-Public Use
  Company Number: US-PFIZER INC-2012304708

PATIENT
  Age: 81 Year
  Sex: Female

DRUGS (1)
  1. NITROGLYCERIN [Suspect]
     Dosage: UNK

REACTIONS (2)
  - Blood pressure decreased [Recovered/Resolved]
  - Drug hypersensitivity [Unknown]
